FAERS Safety Report 5057022-X (Version None)
Quarter: 2006Q2

REPORT INFORMATION
  Report Type: 
  Country: None (occurrence: None)
  Receive Date: 20060622
  Receipt Date: 20060224
  Transmission Date: 20061013
  Serious: Yes (Hospitalization)
  Sender: FDA-Public Use
  Company Number: US-JNJFOC-20051204948

PATIENT
  Age: 78 Year
  Sex: Female
  Weight: 76.6579 kg

DRUGS (11)
  1. DURAGESIC-100 [Suspect]
     Indication: PAIN
     Dosage: 12 UG/HR, 1 IN 3 DAY, TRANSDERMAL
     Route: 062
     Dates: start: 20051103, end: 20051212
  2. COUMADIN [Concomitant]
  3. HYDRALAZINE HCL [Concomitant]
  4. FLONASE [Concomitant]
  5. ASMACORT (TRIAMCINOLONE ACETATE) [Concomitant]
  6. SYNTHROID [Concomitant]
  7. COREG [Concomitant]
  8. LASIX [Concomitant]
  9. OMEPRAZOLE [Concomitant]
  10. DARVOCET [Concomitant]
  11. MAG OX (MAGNESIUM OXIDE) [Concomitant]

REACTIONS (3)
  - ANXIETY [None]
  - DYSPNOEA [None]
  - RETCHING [None]
